FAERS Safety Report 23624818 (Version 1)
Quarter: 2024Q1

REPORT INFORMATION
  Report Type: Spontaneous
  Country: US (occurrence: US)
  Receive Date: 20240313
  Receipt Date: 20240313
  Transmission Date: 20240409
  Serious: No
  Sender: FDA-Public Use
  Company Number: US-SA-SAC20240308000115

PATIENT
  Sex: Female
  Weight: 47.62 kg

DRUGS (8)
  1. DUPIXENT [Suspect]
     Active Substance: DUPILUMAB
     Indication: Dermatitis atopic
     Dosage: 300 MG, QOW
     Route: 058
  2. NERLYNX [Concomitant]
     Active Substance: NERATINIB
  3. MOTRIN IB [Concomitant]
     Active Substance: IBUPROFEN
  4. TYLENOL [Concomitant]
     Active Substance: ACETAMINOPHEN
  5. CLARITIN [Concomitant]
     Active Substance: LORATADINE
  6. XANAX [Concomitant]
     Active Substance: ALPRAZOLAM
  7. LISINOPRIL [Concomitant]
     Active Substance: LISINOPRIL
  8. GABAPENTIN [Concomitant]
     Active Substance: GABAPENTIN

REACTIONS (1)
  - Diarrhoea [Unknown]
